FAERS Safety Report 16458576 (Version 1)
Quarter: 2019Q2

REPORT INFORMATION
  Report Type: Spontaneous
  Country: US (occurrence: US)
  Receive Date: 20190620
  Receipt Date: 20190620
  Transmission Date: 20190711
  Serious: No
  Sender: FDA-Public Use
  Company Number: US-THERAPEUTICSMD-2019TMD00501

PATIENT
  Sex: Female

DRUGS (2)
  1. IMVEXXY [Suspect]
     Active Substance: ESTRADIOL
     Dosage: 10 ?G, 1X/DAY
  2. IMVEXXY [Suspect]
     Active Substance: ESTRADIOL
     Dosage: 10 ?G, 1X/WEEK

REACTIONS (6)
  - Apathy [Not Recovered/Not Resolved]
  - Headache [Unknown]
  - Disturbance in attention [Not Recovered/Not Resolved]
  - Fluid retention [Unknown]
  - Irritability [Unknown]
  - Fatigue [Not Recovered/Not Resolved]
